FAERS Safety Report 14765865 (Version 1)
Quarter: 2018Q2

REPORT INFORMATION
  Report Type: Spontaneous
  Country: US (occurrence: US)
  Receive Date: 20180416
  Receipt Date: 20180416
  Transmission Date: 20180711
  Serious: No
  Sender: FDA-Public Use
  Company Number: US-MYLANLABS-2018M1019925

PATIENT
  Sex: Female
  Weight: 61 kg

DRUGS (1)
  1. ESTRADIOL. [Suspect]
     Active Substance: ESTRADIOL
     Indication: HYSTERECTOMY
     Dosage: 1 MG TABLETS, DAILY DOSE ONE AND ONE HALF  MG DAILY
     Route: 048

REACTIONS (4)
  - Pain [Recovering/Resolving]
  - Migraine [Recovering/Resolving]
  - Gastrointestinal bacterial overgrowth [Recovering/Resolving]
  - Swelling [Recovering/Resolving]
